FAERS Safety Report 13449336 (Version 2)
Quarter: 2017Q2

REPORT INFORMATION
  Report Type: Report from Study
  Country: US (occurrence: US)
  Receive Date: 20170417
  Receipt Date: 20170503
  Transmission Date: 20170830
  Serious: Yes (Death, Hospitalization, Other)
  Sender: FDA-Public Use
  Company Number: US-GILEAD-2017-0267365

PATIENT
  Age: 76 Year
  Sex: Female

DRUGS (1)
  1. AMBRISENTAN [Suspect]
     Active Substance: AMBRISENTAN
     Indication: PRODUCT USED FOR UNKNOWN INDICATION
     Dosage: 10 MG, QD
     Route: 065

REACTIONS (7)
  - Mechanical ventilation [Unknown]
  - Drug hypersensitivity [Unknown]
  - Death [Fatal]
  - Dialysis [Unknown]
  - Infection [Unknown]
  - Enteral nutrition [Unknown]
  - Fall [Unknown]

NARRATIVE: CASE EVENT DATE: 20170421
